FAERS Safety Report 9476165 (Version 1)
Quarter: 2013Q3

REPORT INFORMATION
  Report Type: Spontaneous
  Country: DE (occurrence: ES)
  Receive Date: 20130826
  Receipt Date: 20130826
  Transmission Date: 20140515
  Serious: Yes (Life-Threatening)
  Sender: FDA-Public Use
  Company Number: ES-FRI-1000047985

PATIENT
  Age: 78 Year
  Sex: Female

DRUGS (1)
  1. MEMANTINE [Suspect]
     Indication: DEMENTIA
     Dosage: 20 MG
     Route: 048
     Dates: start: 20130423

REACTIONS (3)
  - Atrioventricular block [Recovering/Resolving]
  - Epilepsy [Recovering/Resolving]
  - Syncope [Recovering/Resolving]
